FAERS Safety Report 21680944 (Version 1)
Quarter: 2022Q4

REPORT INFORMATION
  Report Type: Spontaneous
  Country: ES (occurrence: ES)
  Receive Date: 20221205
  Receipt Date: 20221205
  Transmission Date: 20230113
  Serious: Yes (Other)
  Sender: FDA-Public Use
  Company Number: ES-TEVA-2022-ES-2827281

PATIENT
  Age: 52 Year
  Sex: Male

DRUGS (16)
  1. QUETIAPINE [Interacting]
     Active Substance: QUETIAPINE
     Indication: Antipsychotic therapy
     Dosage: 300 MILLIGRAM,600 MILLIGRAM DAILY
     Route: 065
     Dates: start: 20170426
  2. DARUNAVIR [Interacting]
     Active Substance: DARUNAVIR
     Indication: HIV infection
     Dosage: 600 MILLIGRAM,1200 MILLIGRAM DAILY
     Route: 065
     Dates: start: 20100824
  3. INSULIN ASPART [Concomitant]
     Active Substance: INSULIN ASPART
     Indication: Diabetes prophylaxis
     Dosage: UNK,10 IU/8 H
     Route: 065
     Dates: start: 20200707
  4. INSULIN GLARGINE [Concomitant]
     Active Substance: INSULIN GLARGINE
     Indication: Diabetes prophylaxis
     Dosage: UNK,60 IU/24 H
     Route: 065
     Dates: start: 20190527
  5. DULAGLUTIDE [Concomitant]
     Active Substance: DULAGLUTIDE
     Indication: Diabetes prophylaxis
     Dosage: UNK,1.5 MG/7 D
     Route: 065
     Dates: start: 20190529
  6. ROSUVASTATIN [Concomitant]
     Active Substance: ROSUVASTATIN
     Indication: Lipids abnormal
     Dosage: UNK,5 MG/24 H
     Route: 065
     Dates: start: 20180511
  7. OMEPRAZOLE [Concomitant]
     Active Substance: OMEPRAZOLE
     Indication: Prophylaxis against gastrointestinal ulcer
     Dosage: UNK,40 MG/24 H
     Route: 065
     Dates: start: 20191127
  8. LOSARTAN [Concomitant]
     Active Substance: LOSARTAN
     Indication: Hypertension
     Dosage: UNK,100 MG/24 H
     Route: 065
     Dates: start: 20181013
  9. ZOLPIDEM [Concomitant]
     Active Substance: ZOLPIDEM TARTRATE
     Indication: Hypnotherapy
     Dosage: UNK,10 MG/24 H
     Route: 065
     Dates: start: 20190313
  10. FENOFIBRATE [Concomitant]
     Active Substance: FENOFIBRATE
     Indication: Lipids abnormal
     Dosage: UNK,145 MG/24 H
     Route: 065
     Dates: start: 20200420
  11. METAMIZOLE [Concomitant]
     Active Substance: METAMIZOLE
     Indication: Analgesic therapy
     Dosage: UNK,575 MG/8 H
     Route: 065
     Dates: start: 20210707
  12. CLORAZEPATE DIPOTASSIUM [Concomitant]
     Active Substance: CLORAZEPATE DIPOTASSIUM
     Indication: Anxiolytic therapy
     Dosage: UNK,15 MG/4? H
     Route: 065
     Dates: start: 20190221
  13. LORMETAZEPAM [Concomitant]
     Active Substance: LORMETAZEPAM
     Indication: Hypnotherapy
     Dosage: UNK,2 MG/24 H
     Route: 065
     Dates: start: 20171216
  14. GABAPENTIN [Concomitant]
     Active Substance: GABAPENTIN
     Indication: Analgesic therapy
     Dosage: UNK,600 MG/8 H
     Route: 065
     Dates: start: 20211015
  15. ACETAMINOPHEN [Concomitant]
     Active Substance: ACETAMINOPHEN
     Indication: Analgesic therapy
     Dosage: UNK,1 G/12 H
     Route: 065
     Dates: start: 20210721
  16. ETRAVIRINE [Concomitant]
     Active Substance: ETRAVIRINE
     Indication: HIV infection
     Dosage: UNK,200 MG/24 H
     Route: 065
     Dates: start: 20140527

REACTIONS (8)
  - Agitation [Recovered/Resolved]
  - Tachycardia [Recovered/Resolved]
  - Confusional state [Recovered/Resolved]
  - Drug interaction [Unknown]
  - Extra dose administered [Unknown]
  - Insomnia [Recovered/Resolved]
  - Nervousness [Recovered/Resolved]
  - Restlessness [Recovered/Resolved]
